FAERS Safety Report 4941774-0 (Version None)
Quarter: 2006Q1

REPORT INFORMATION
  Report Type: 
  Country: None (occurrence: None)
  Receive Date: 20060308
  Receipt Date: 20060222
  Transmission Date: 20060701
  Serious: Yes (Hospitalization)
  Sender: FDA-Public Use
  Company Number: CERZ-11144

PATIENT
  Age: 86 Year
  Sex: Male

DRUGS (3)
  1. CEREZYME [Suspect]
     Indication: GAUCHER'S DISEASE
     Dosage: 5200 UNITS Q4WKS IV
     Route: 042
     Dates: end: 20051201
  2. CEREZYME [Suspect]
     Indication: GAUCHER'S DISEASE
     Dosage: UNK
     Route: 065
     Dates: start: 20020101, end: 20031201
  3. CEREZYME [Suspect]
     Indication: GAUCHER'S DISEASE
     Dosage: UNK
     Route: 065
     Dates: start: 19970424

REACTIONS (9)
  - ACQUIRED OESOPHAGEAL WEB [None]
  - ATRIAL FIBRILLATION [None]
  - CARDIAC FAILURE CONGESTIVE [None]
  - CHRONIC OBSTRUCTIVE PULMONARY DISEASE [None]
  - CONDITION AGGRAVATED [None]
  - DUODENITIS [None]
  - GASTRITIS [None]
  - PLEURAL EFFUSION [None]
  - PULMONARY HYPERTENSION [None]
